FAERS Safety Report 10933806 (Version 2)
Quarter: 2015Q2

REPORT INFORMATION
  Report Type: Report from Study
  Country: US (occurrence: US)
  Receive Date: 20150320
  Receipt Date: 20150407
  Transmission Date: 20150821
  Serious: Yes (Other)
  Sender: FDA-Public Use
  Company Number: US-BIOGENIDEC-2015BI034277

PATIENT
  Sex: Female
  Weight: 48 kg

DRUGS (25)
  1. MIRAPEX [Concomitant]
     Active Substance: PRAMIPEXOLE DIHYDROCHLORIDE
     Route: 048
  2. ADVAIR HFA [Concomitant]
     Active Substance: FLUTICASONE PROPIONATE\SALMETEROL XINAFOATE
     Route: 048
  3. BUTORPHANOL [Concomitant]
     Active Substance: BUTORPHANOL
  4. LASIX [Concomitant]
     Active Substance: FUROSEMIDE
     Route: 048
  5. LEVITIRACETAM [Concomitant]
     Active Substance: LEVETIRACETAM
     Route: 048
  6. MELOXICAM. [Concomitant]
     Active Substance: MELOXICAM
     Route: 048
  7. PROTONIX [Concomitant]
     Active Substance: PANTOPRAZOLE SODIUM
     Route: 048
  8. SINGULARI [Concomitant]
     Route: 048
  9. FLORINAL CODEINE [Concomitant]
     Route: 048
  10. TECFIDERA [Suspect]
     Active Substance: DIMETHYL FUMARATE
     Indication: MULTIPLE SCLEROSIS
     Route: 048
     Dates: start: 20140106
  11. SOMA [Concomitant]
     Active Substance: CARISOPRODOL
     Route: 048
  12. XANAX [Concomitant]
     Active Substance: ALPRAZOLAM
     Route: 048
  13. TRAMADOL [Concomitant]
     Active Substance: TRAMADOL
     Indication: PAIN
     Route: 048
  14. LOSARTAN [Concomitant]
     Active Substance: LOSARTAN
     Route: 048
  15. ZYPREXA [Concomitant]
     Active Substance: OLANZAPINE
     Route: 048
  16. AMBIEN [Concomitant]
     Active Substance: ZOLPIDEM TARTRATE
     Route: 048
  17. DALIRESP [Concomitant]
     Active Substance: ROFLUMILAST
     Route: 048
  18. FLONASE [Concomitant]
     Active Substance: FLUTICASONE PROPIONATE
  19. HYDROXYZINE HCL [Concomitant]
     Active Substance: HYDROXYZINE HYDROCHLORIDE
     Route: 048
  20. MUCINEX [Concomitant]
     Active Substance: GUAIFENESIN
  21. TRAZODONE [Concomitant]
     Active Substance: TRAZODONE HYDROCHLORIDE
     Route: 048
  22. AVONEX [Concomitant]
     Active Substance: INTERFERON BETA-1A
     Indication: MULTIPLE SCLEROSIS
     Route: 030
     Dates: start: 20021102
  23. CYMBALTA [Concomitant]
     Active Substance: DULOXETINE HYDROCHLORIDE
     Route: 048
  24. LAMOTRIGINE. [Concomitant]
     Active Substance: LAMOTRIGINE
     Route: 048
  25. SPIRIVA [Concomitant]
     Active Substance: TIOTROPIUM BROMIDE MONOHYDRATE
     Route: 048

REACTIONS (1)
  - Complex partial seizures [Unknown]

NARRATIVE: CASE EVENT DATE: 2014
